FAERS Safety Report 5404678-5 (Version None)
Quarter: 2007Q3

REPORT INFORMATION
  Report Type: 
  Country: None (occurrence: None)
  Receive Date: 20070731
  Receipt Date: 20070716
  Transmission Date: 20080115
  Serious: Yes (Hospitalization)
  Sender: FDA-Public Use
  Company Number: S07-FRA-03196-01

PATIENT
  Age: 84 Year
  Sex: Female

DRUGS (7)
  1. ESCITALOPRAM [Suspect]
     Dosage: 20 MG QD PO
     Route: 048
     Dates: start: 20070518, end: 20070531
  2. CITALOPRAM HYDROBROMIDE [Suspect]
     Dates: start: 20070430, end: 20070515
  3. ALPRAZOLAM [Concomitant]
  4. ATHYMIL (MIANSERIN HYDROCHLORIDE) [Concomitant]
  5. TRANXENE [Concomitant]
  6. TERCIAN (CYAMEMAZINE) [Concomitant]
  7. OROCAL (CALCIUM CARBONATE) [Concomitant]

REACTIONS (3)
  - HAEMATOMA [None]
  - MAJOR DEPRESSION [None]
  - WOUND [None]
